FAERS Safety Report 8268675-7 (Version None)
Quarter: 2012Q2

REPORT INFORMATION
  Report Type: 
  Country: None (occurrence: None)
  Receive Date: 20120409
  Receipt Date: 20120404
  Transmission Date: 20120825
  Serious: No
  Sender: FDA-Public Use
  Company Number: US-PFIZER INC-2012086313

PATIENT
  Sex: Male

DRUGS (3)
  1. VIAGRA [Suspect]
     Dosage: 50 MG, UNK
     Route: 048
  2. VIAGRA [Suspect]
     Dosage: 100 MG, UNK
     Route: 048
  3. VIAGRA [Suspect]
     Dosage: 25 MG, UNK
     Route: 048

REACTIONS (1)
  - DRUG INEFFECTIVE [None]
